FAERS Safety Report 23959205 (Version 2)
Quarter: 2024Q3

REPORT INFORMATION
  Report Type: Spontaneous
  Country: JP (occurrence: JP)
  Receive Date: 20240611
  Receipt Date: 20240715
  Transmission Date: 20241017
  Serious: Yes (Hospitalization)
  Sender: TEVA
  Company Number: JP-TEVA-VS-3207521

PATIENT
  Age: 10 Year
  Sex: Female

DRUGS (1)
  1. PREDNISOLONE [Suspect]
     Active Substance: PREDNISOLONE
     Indication: Rheumatoid arthritis
     Route: 065

REACTIONS (6)
  - Diabetes mellitus [Unknown]
  - Coronary artery stenosis [Unknown]
  - Dyslipidaemia [Unknown]
  - Arteriosclerosis coronary artery [Unknown]
  - Myocardial infarction [Unknown]
  - Coronary artery stenosis [Unknown]
